FAERS Safety Report 5273671-8 (Version None)
Quarter: 2007Q1

REPORT INFORMATION
  Report Type: 
  Country: None (occurrence: None)
  Receive Date: 20061219
  Receipt Date: 20061002
  Transmission Date: 20070707
  Serious: Yes (Hospitalization, Other)
  Sender: FDA-Public Use
  Company Number: US-JNJFOC-20060900942

PATIENT
  Age: 36 Year
  Sex: Female
  Weight: 75.2971 kg

DRUGS (3)
  1. ORTHO EVRA [Suspect]
     Indication: CONTRACEPTION
     Dosage: TRANSDERMAL
     Route: 062
     Dates: start: 20020930, end: 20040821
  2. ORTHO EVRA [Suspect]
     Indication: DYSMENORRHOEA
     Dosage: TRANSDERMAL
     Route: 062
     Dates: start: 20020930, end: 20040821
  3. ORTHO EVRA [Suspect]
     Indication: MENORRHAGIA
     Dosage: TRANSDERMAL
     Route: 062
     Dates: start: 20020930, end: 20040821

REACTIONS (1)
  - INTRACRANIAL VENOUS SINUS THROMBOSIS [None]
